FAERS Safety Report 6647693-6 (Version None)
Quarter: 2010Q1

REPORT INFORMATION
  Report Type: 
  Country: None (occurrence: None)
  Receive Date: 20100323
  Receipt Date: 20100323
  Transmission Date: 20100710
  Serious: Yes (Other)
  Sender: FDA-Public Use
  Company Number: None

PATIENT
  Sex: Female
  Weight: 49.4421 kg

DRUGS (1)
  1. FORTEO [Suspect]
     Indication: OSTEOPOROSIS
     Dosage: 20 MG DAILY INJECTION
     Dates: start: 20090301, end: 20100201

REACTIONS (4)
  - CHILLS [None]
  - DIARRHOEA [None]
  - MALAISE [None]
  - VOMITING [None]
